FAERS Safety Report 9958780 (Version 1)
Quarter: 2014Q1

REPORT INFORMATION
  Report Type: Report from Study
  Country: US (occurrence: US)
  Receive Date: 20140305
  Receipt Date: 20140305
  Transmission Date: 20141002
  Serious: Yes (Other)
  Sender: FDA-Public Use
  Company Number: US-ABBVIE-13P-163-1103808-00

PATIENT
  Sex: Male
  Weight: 110.32 kg

DRUGS (7)
  1. HUMIRA [Suspect]
     Indication: PSORIASIS
     Dates: start: 20130131
  2. TOPROL [Concomitant]
     Indication: HYPERTENSION
  3. NEXIUM [Concomitant]
     Indication: PRODUCT USED FOR UNKNOWN INDICATION
  4. GABAPENTIN [Concomitant]
     Indication: ANXIETY
     Dosage: 1 IN THE MORNING AND 1 IN THE EVENING
  5. PLAVIX [Concomitant]
     Indication: ANTICOAGULANT THERAPY
  6. CITALOPRAM [Concomitant]
     Indication: DEPRESSION
     Dosage: AT BEDTIME
  7. ETODOLAC [Concomitant]
     Indication: ARTHRALGIA

REACTIONS (1)
  - Basal cell carcinoma [Not Recovered/Not Resolved]
